FAERS Safety Report 7355458-5 (Version None)
Quarter: 2011Q1

REPORT INFORMATION
  Report Type: 
  Country: None (occurrence: None)
  Receive Date: 20110316
  Receipt Date: 20110307
  Transmission Date: 20110831
  Serious: Yes (Other)
  Sender: FDA-Public Use
  Company Number: US-ELI_LILLY_AND_COMPANY-US201103002942

PATIENT
  Sex: Female

DRUGS (1)
  1. ALIMTA [Suspect]
     Indication: BLADDER CANCER
     Dates: start: 20100928, end: 20110111

REACTIONS (2)
  - DISEASE RECURRENCE [None]
  - OFF LABEL USE [None]
